FAERS Safety Report 13047973 (Version 3)
Quarter: 2017Q1

REPORT INFORMATION
  Report Type: Spontaneous
  Country: US (occurrence: US)
  Receive Date: 20161220
  Receipt Date: 20170303
  Transmission Date: 20170428
  Serious: Yes (Life-Threatening, Hospitalization, Other)
  Sender: FDA-Public Use
  Company Number: US-PFIZER INC-2016580557

PATIENT
  Age: 85 Year
  Sex: Female
  Weight: 74 kg

DRUGS (4)
  1. CALAN SR [Suspect]
     Active Substance: VERAPAMIL HYDROCHLORIDE
     Indication: HYPERTENSION
     Dosage: 240 MG, UNK
     Dates: start: 201510
  2. HYZAAR [Interacting]
     Active Substance: HYDROCHLOROTHIAZIDE\LOSARTAN POTASSIUM
     Dosage: 100 MG, DAILY
  3. COREG [Interacting]
     Active Substance: CARVEDILOL
     Dosage: 60 MG, UNK
     Dates: start: 201608
  4. COREG [Interacting]
     Active Substance: CARVEDILOL
     Dosage: 40 MG, UNK
     Dates: start: 201603

REACTIONS (7)
  - Speech disorder [Unknown]
  - Mydriasis [Unknown]
  - Overdose [Unknown]
  - Loss of consciousness [Unknown]
  - Drug interaction [Unknown]
  - Heart rate decreased [Unknown]
  - Hypotension [Unknown]

NARRATIVE: CASE EVENT DATE: 20161126
